FAERS Safety Report 4427978-4 (Version None)
Quarter: 2004Q3

REPORT INFORMATION
  Report Type: 
  Country: None (occurrence: None)
  Receive Date: 20040813
  Receipt Date: 20040804
  Transmission Date: 20050211
  Serious: Yes (Other)
  Sender: FDA-Public Use
  Company Number: 2004226964US

PATIENT
  Age: 52 Year
  Sex: Female

DRUGS (4)
  1. PROVERA [Suspect]
     Dates: start: 19970730, end: 20000111
  2. OGEN [Suspect]
  3. PREMARIN [Suspect]
     Dates: start: 19981210, end: 19990105
  4. PREMPRO [Suspect]
     Dates: start: 20000111, end: 20020901

REACTIONS (1)
  - OVARIAN CANCER [None]
